FAERS Safety Report 25637975 (Version 1)
Quarter: 2025Q3

REPORT INFORMATION
  Report Type: Spontaneous
  Country: CN (occurrence: CN)
  Receive Date: 20250804
  Receipt Date: 20250804
  Transmission Date: 20251021
  Serious: Yes (Other)
  Sender: PFIZER
  Company Number: CN-PFIZER INC-PV202500091705

PATIENT
  Age: 31 Year
  Sex: Female
  Weight: 51.5 kg

DRUGS (2)
  1. EPIRUBICIN HYDROCHLORIDE [Suspect]
     Active Substance: EPIRUBICIN HYDROCHLORIDE
     Indication: Breast cancer female
     Dosage: 120 MG, EVERY 3 WEEKS (EVERY 21 DAYS)
     Route: 041
     Dates: start: 20250703, end: 20250703
  2. CYCLOPHOSPHAMIDE [Suspect]
     Active Substance: CYCLOPHOSPHAMIDE
     Indication: Breast cancer female
     Dosage: 900 MG, EVERY 3 WEEKS (EVERY 21 DAYS)
     Route: 041
     Dates: start: 20250704, end: 20250704

REACTIONS (1)
  - Transaminases abnormal [Unknown]

NARRATIVE: CASE EVENT DATE: 20250725
